FAERS Safety Report 4865254-6 (Version None)
Quarter: 2005Q4

REPORT INFORMATION
  Report Type: 
  Country: None (occurrence: None)
  Receive Date: 20051223
  Receipt Date: 20051222
  Transmission Date: 20060501
  Serious: Yes (Other)
  Sender: FDA-Public Use
  Company Number: DE-GLAXOSMITHKLINE-D0048295A

PATIENT
  Age: 3 Year
  Sex: Female

DRUGS (1)
  1. MALARONE [Suspect]
     Indication: MALARIA PROPHYLAXIS
     Dosage: 87.5MG UNKNOWN
     Route: 048
     Dates: start: 20051125, end: 20051201

REACTIONS (3)
  - ABDOMINAL PAIN UPPER [None]
  - ASPARTATE AMINOTRANSFERASE INCREASED [None]
  - FAECES DISCOLOURED [None]
